FAERS Safety Report 25330809 (Version 1)
Quarter: 2025Q2

REPORT INFORMATION
  Report Type: Spontaneous
  Country: US (occurrence: None)
  Receive Date: 20250516
  Receipt Date: 20250516
  Transmission Date: 20250716
  Serious: Yes (Life-Threatening, Disabling)
  Sender: FDA-CTU
  Company Number: None

PATIENT
  Age: 40 Year
  Sex: Female
  Weight: 72 kg

DRUGS (5)
  1. SERTRALINE [Suspect]
     Active Substance: SERTRALINE HYDROCHLORIDE
     Indication: Fatigue
  2. SERTRALINE [Suspect]
     Active Substance: SERTRALINE HYDROCHLORIDE
     Indication: Stress
  3. LEXAPRO [Suspect]
     Active Substance: ESCITALOPRAM OXALATE
  4. CELEXA [Suspect]
     Active Substance: CITALOPRAM HYDROBROMIDE
  5. PROZAC [Suspect]
     Active Substance: FLUOXETINE HYDROCHLORIDE

REACTIONS (11)
  - Akathisia [None]
  - Suicidal ideation [None]
  - Muscular weakness [None]
  - Electric shock sensation [None]
  - Tinnitus [None]
  - Cognitive disorder [None]
  - Derealisation [None]
  - Drug withdrawal syndrome [None]
  - Impaired work ability [None]
  - Loss of personal independence in daily activities [None]
  - Fear [None]

NARRATIVE: CASE EVENT DATE: 20230315
